FAERS Safety Report 13554144 (Version 1)
Quarter: 2017Q2

REPORT INFORMATION
  Report Type: Spontaneous
  Country: DE (occurrence: DE)
  Receive Date: 20170517
  Receipt Date: 20170517
  Transmission Date: 20170830
  Serious: Yes (Other)
  Sender: FDA-Public Use
  Company Number: DE-TEVA-767652GER

PATIENT
  Age: 60 Year
  Sex: Female

DRUGS (5)
  1. ATORVASTATIN-RATIOPHARM 60 MG FILMTABLETTEN [Suspect]
     Active Substance: ATORVASTATIN
     Dosage: 60 MILLIGRAM DAILY;
     Route: 048
     Dates: start: 20170414
  2. RAMIPRIL 10 MG [Concomitant]
  3. AMIODARON [Concomitant]
     Active Substance: AMIODARONE
     Dosage: TREATMENT SLOWLY REDUCED 3 WEEKS AGO DUE TO OVERDOSE
  4. XARELTO [Concomitant]
     Active Substance: RIVAROXABAN
  5. ATORVASTATIN-RATIOPHARM 60 MG FILMTABLETTEN [Suspect]
     Active Substance: ATORVASTATIN
     Dosage: 30 MILLIGRAM DAILY;
     Route: 048

REACTIONS (6)
  - Fatigue [Unknown]
  - Hyperhidrosis [Unknown]
  - Pain [Unknown]
  - Feeling cold [Unknown]
  - Palpitations [Unknown]
  - Hypotonia [Unknown]

NARRATIVE: CASE EVENT DATE: 2017
